FAERS Safety Report 7494814-1 (Version None)
Quarter: 2011Q2

REPORT INFORMATION
  Report Type: 
  Country: None (occurrence: None)
  Receive Date: 20110520
  Receipt Date: 20110512
  Transmission Date: 20111010
  Serious: Yes (Other)
  Sender: FDA-Public Use
  Company Number: A0927980A

PATIENT
  Age: 56 Year
  Sex: Female
  Weight: 67.1 kg

DRUGS (8)
  1. FLOLAN [Suspect]
     Indication: PULMONARY ARTERIAL HYPERTENSION
     Route: 065
     Dates: start: 20070524
  2. IMODIUM MULTI-SYMPTOM RELIEF [Concomitant]
  3. WARFARIN SODIUM [Concomitant]
  4. LYRICA [Concomitant]
  5. ADVAIR DISKUS 100/50 [Concomitant]
  6. DIGOXIN [Concomitant]
  7. OXYGEN [Concomitant]
  8. SPIRIVA [Concomitant]

REACTIONS (1)
  - HEPATIC ENZYME INCREASED [None]
